FAERS Safety Report 7359213-1 (Version None)
Quarter: 2011Q1

REPORT INFORMATION
  Report Type: 
  Country: None (occurrence: None)
  Receive Date: 20110317
  Receipt Date: 20110304
  Transmission Date: 20110831
  Serious: Yes (Other)
  Sender: FDA-Public Use
  Company Number: PHHY2010FI41018

PATIENT
  Sex: Female

DRUGS (5)
  1. HYDREX SEMI [Concomitant]
     Dosage: A TABLET (25MG) ONCE A DAY
  2. PRIMASPAN [Concomitant]
     Dosage: A TABLET ONCE A DAY
  3. GLEEVEC [Suspect]
     Indication: CHRONIC MYELOID LEUKAEMIA
     Dosage: 400 MG PER DAY
  4. METFOREM [Concomitant]
     Dosage: 2+1 TABLETS PER DAY
  5. FEMOSTON [Concomitant]
     Dosage: 1 DF, QD , 1/5 (DYDROGESTERONE 5MG, ESTRADIOL 1MG)

REACTIONS (3)
  - BLOOD IMMUNOGLOBULIN A DECREASED [None]
  - BLOOD IMMUNOGLOBULIN M DECREASED [None]
  - BLOOD IMMUNOGLOBULIN G DECREASED [None]
